FAERS Safety Report 9033979 (Version 1)
Quarter: 2013Q1

REPORT INFORMATION
  Report Type: Spontaneous
  Country: IE (occurrence: IE)
  Receive Date: 20130128
  Receipt Date: 20130128
  Transmission Date: 20140127
  Serious: Yes (Other)
  Sender: FDA-Public Use
  Company Number: IE-AMGEN-IRLSP2012064802

PATIENT
  Age: 21 Year
  Sex: Female

DRUGS (1)
  1. NEULASTA [Suspect]
     Indication: BREAST CANCER
     Dosage: 6 MUG, Q2WK
     Route: 058
     Dates: start: 20120927

REACTIONS (3)
  - Chest discomfort [Recovered/Resolved]
  - Dyspnoea [Recovered/Resolved]
  - Bone pain [Recovered/Resolved]
